FAERS Safety Report 8494105-6 (Version None)
Quarter: 2012Q3

REPORT INFORMATION
  Report Type: 
  Country: None (occurrence: None)
  Receive Date: 20120702
  Receipt Date: 20120702
  Transmission Date: 20120928
  Serious: Yes (Hospitalization, Other)
  Sender: FDA-Public Use
  Company Number: None

PATIENT
  Sex: Male
  Weight: 90.7194 kg

DRUGS (1)
  1. TAMSULOSIN HCL [Suspect]
     Indication: PROSTATOMEGALY
     Dosage: 1 CAPSULE 30 MN AFTER BREAK PO
     Route: 048
     Dates: start: 20100323, end: 20120323

REACTIONS (5)
  - SYNCOPE [None]
  - MUSCULOSKELETAL DISCOMFORT [None]
  - DIZZINESS POSTURAL [None]
  - DIZZINESS [None]
  - CEREBROVASCULAR ACCIDENT [None]
